FAERS Safety Report 13011428 (Version 1)
Quarter: 2016Q4

REPORT INFORMATION
  Report Type: Spontaneous
  Country: US (occurrence: US)
  Receive Date: 20161209
  Receipt Date: 20161209
  Transmission Date: 20170207
  Serious: No
  Sender: FDA-Public Use
  Company Number: US-009507513-1612USA003563

PATIENT
  Sex: Female
  Weight: 131 kg

DRUGS (1)
  1. NEXPLANON [Suspect]
     Active Substance: ETONOGESTREL
     Dosage: 1 DF, EVERY 3 YEARS
     Route: 059

REACTIONS (2)
  - Menstruation irregular [Unknown]
  - Device breakage [Recovered/Resolved]
